FAERS Safety Report 5270898-6 (Version None)
Quarter: 2007Q1

REPORT INFORMATION
  Report Type: 
  Country: None (occurrence: None)
  Receive Date: 20070321
  Receipt Date: 20070309
  Transmission Date: 20070707
  Serious: Yes (Other)
  Sender: FDA-Public Use
  Company Number: PHBS2007KR04548

PATIENT
  Age: 53 Year
  Sex: Female

DRUGS (1)
  1. ZOMETA [Suspect]
     Dosage: IV ONCE A MONTH
     Route: 042
     Dates: start: 20060901, end: 20070305

REACTIONS (3)
  - TOOTH ABSCESS [None]
  - TOOTH EXTRACTION [None]
  - TOOTH INJURY [None]
